FAERS Safety Report 12503622 (Version 2)
Quarter: 2016Q3

REPORT INFORMATION
  Report Type: Spontaneous
  Country: JP (occurrence: JP)
  Receive Date: 20160628
  Receipt Date: 20160808
  Transmission Date: 20161109
  Serious: Yes (Other)
  Sender: FDA-Public Use
  Company Number: JP-ELI_LILLY_AND_COMPANY-JP201606005725

PATIENT
  Age: 75 Year
  Sex: Male

DRUGS (3)
  1. TS-1 [Suspect]
     Active Substance: GIMERACIL\OTERACIL\TEGAFUR
     Indication: MALIGNANT NEOPLASM PAPILLA OF VATER
     Route: 065
  2. GEMZAR [Suspect]
     Active Substance: GEMCITABINE HYDROCHLORIDE
     Indication: MALIGNANT NEOPLASM PAPILLA OF VATER
     Route: 042
  3. CISPLATIN. [Suspect]
     Active Substance: CISPLATIN
     Indication: MALIGNANT NEOPLASM PAPILLA OF VATER
     Route: 065

REACTIONS (4)
  - Interstitial lung disease [Unknown]
  - Metastases to liver [Unknown]
  - Haematotoxicity [Unknown]
  - Neuropathy peripheral [Unknown]
